FAERS Safety Report 7828358-1 (Version None)
Quarter: 2011Q4

REPORT INFORMATION
  Report Type: 
  Country: None (occurrence: None)
  Receive Date: 20111020
  Receipt Date: 20111010
  Transmission Date: 20120403
  Serious: Yes (Other)
  Sender: FDA-Public Use
  Company Number: SE-MPIJNJ-2011-04851

PATIENT

DRUGS (3)
  1. VELCADE [Suspect]
     Indication: PRODUCT USED FOR UNKNOWN INDICATION
     Dosage: UNK
     Route: 065
  2. CYCLOPHOSPHAMIDE [Concomitant]
     Dosage: UNK
     Route: 065
  3. DEXAMETHASONE [Concomitant]
     Dosage: UNK
     Route: 065

REACTIONS (2)
  - THROMBOPHLEBITIS [None]
  - DEEP VEIN THROMBOSIS [None]
